FAERS Safety Report 21666934 (Version 15)
Quarter: 2024Q1

REPORT INFORMATION
  Report Type: Spontaneous
  Country: CA (occurrence: CA)
  Receive Date: 20221201
  Receipt Date: 20240208
  Transmission Date: 20240410
  Serious: Yes (Other)
  Sender: FDA-Public Use
  Company Number: CA-CELLTRION INC.-2022CA018972

PATIENT

DRUGS (23)
  1. INFLECTRA [Suspect]
     Active Substance: INFLIXIMAB-DYYB
     Indication: Colitis ulcerative
     Dosage: 5 MG/KG, WEEK 0 INDUCTION AT HOSPITAL
     Route: 042
     Dates: start: 20220619
  2. INFLECTRA [Suspect]
     Active Substance: INFLIXIMAB-DYYB
     Dosage: 5 MG/KG RE-INDUCTION WEEK 0,2,6 THEN EVERY 8 WEEKS
     Route: 042
     Dates: start: 20220816
  3. INFLECTRA [Suspect]
     Active Substance: INFLIXIMAB-DYYB
     Dosage: 5 MG/KG RE-INDUCTION WEEK 0,2,6 THEN EVERY 8 WEEKS
     Route: 042
     Dates: start: 20220927
  4. INFLECTRA [Suspect]
     Active Substance: INFLIXIMAB-DYYB
     Dosage: 5 MG/KG RE-INDUCTION WEEK 0,2,6 THEN EVERY 8 WEEKS
     Route: 042
     Dates: start: 20221122
  5. INFLECTRA [Suspect]
     Active Substance: INFLIXIMAB-DYYB
     Dosage: 5 MG/KG RE-INDUCTION WEEK 0,2,6 THEN EVERY 8 WEEKS
     Route: 042
     Dates: start: 20221122
  6. INFLECTRA [Suspect]
     Active Substance: INFLIXIMAB-DYYB
     Dosage: 5 MG/KG RE-INDUCTION WEEK 0,2,6 THEN EVERY 8 WEEKS
     Route: 042
     Dates: start: 20221122
  7. INFLECTRA [Suspect]
     Active Substance: INFLIXIMAB-DYYB
     Dosage: 5 MG/KG RE-INDUCTION WEEK 0,2,6 THEN EVERY 8 WEEKS
     Route: 042
     Dates: start: 20221122
  8. INFLECTRA [Suspect]
     Active Substance: INFLIXIMAB-DYYB
     Dosage: 5 MG/KG RE-INDUCTION WEEK 0,2,6 THEN EVERY 8 WEEKS
     Route: 042
     Dates: start: 20221122
  9. INFLECTRA [Suspect]
     Active Substance: INFLIXIMAB-DYYB
     Dosage: 5 MG/KG, RE INDUCTION WEEKS 0, 2, 6 THEN Q 4 WEEKS
     Route: 042
     Dates: start: 20221214
  10. INFLECTRA [Suspect]
     Active Substance: INFLIXIMAB-DYYB
     Dosage: 5 MG/KG, RE INDUCTION WEEKS 0, 2, 6 THEN Q 4 WEEKS
     Route: 042
     Dates: start: 20230125
  11. INFLECTRA [Suspect]
     Active Substance: INFLIXIMAB-DYYB
     Dosage: 330MG (5MG/KG), EVERY 4 WEEKS
     Route: 042
     Dates: start: 20230222
  12. INFLECTRA [Suspect]
     Active Substance: INFLIXIMAB-DYYB
     Dosage: 335MG (5MG/KG), EVERY 4 WEEKS
     Route: 042
     Dates: start: 20230322
  13. INFLECTRA [Suspect]
     Active Substance: INFLIXIMAB-DYYB
     Dosage: 5 MG/KG, RE INDUCTION WEEKS 0, 2, 6 THEN Q 4 WEEKS
     Route: 042
     Dates: start: 20230613
  14. INFLECTRA [Suspect]
     Active Substance: INFLIXIMAB-DYYB
     Dosage: 345 MG, 5MG/KG  EVERY 4 WEEKS
     Route: 042
     Dates: start: 20230712
  15. INFLECTRA [Suspect]
     Active Substance: INFLIXIMAB-DYYB
     Dosage: 345 MG, 4 WEEKS
     Route: 042
     Dates: start: 20230809
  16. INFLECTRA [Suspect]
     Active Substance: INFLIXIMAB-DYYB
     Dosage: 340 MG, 4 WEEKS
     Route: 042
     Dates: start: 20230906
  17. INFLECTRA [Suspect]
     Active Substance: INFLIXIMAB-DYYB
     Dosage: 5 MG/KG, RE INDUCTION WEEKS 0, 2, 6 THEN Q 4 WEEKS [340MG, 4 WEEKS]
     Route: 042
     Dates: start: 20231004
  18. INFLECTRA [Suspect]
     Active Substance: INFLIXIMAB-DYYB
     Dosage: 345 MG AFTER 1 WK 345 MG AFTER 1 WK (TOP UP DOSE OF 5MG/KG, THEN INCREASE TO 10MG/KG)
     Route: 042
     Dates: start: 20231010
  19. INFLECTRA [Suspect]
     Active Substance: INFLIXIMAB-DYYB
     Dosage: 660 MG, 4 WEEKS
     Route: 042
     Dates: start: 20231107
  20. INFLECTRA [Suspect]
     Active Substance: INFLIXIMAB-DYYB
     Dosage: 660 MG, 4 WEEKS AND 1 DAY
     Route: 042
     Dates: start: 20231206
  21. INFLECTRA [Suspect]
     Active Substance: INFLIXIMAB-DYYB
     Dosage: 700 MG EVERY 4 WEEKS
     Route: 042
     Dates: start: 20240103
  22. INFLECTRA [Suspect]
     Active Substance: INFLIXIMAB-DYYB
     Dosage: 680 MG, EVERY 4 WEEKS
     Route: 042
     Dates: start: 20240131
  23. PREDNISONE [Concomitant]
     Active Substance: PREDNISONE
     Dosage: 30 MG, 1X/DAY
     Route: 048

REACTIONS (7)
  - Condition aggravated [Not Recovered/Not Resolved]
  - Drug ineffective [Unknown]
  - Stress [Unknown]
  - Emotional distress [Unknown]
  - Insomnia [Unknown]
  - Depression [Unknown]
  - Off label use [Unknown]

NARRATIVE: CASE EVENT DATE: 20220101
